FAERS Safety Report 5864249-3 (Version None)
Quarter: 2008Q3

REPORT INFORMATION
  Report Type: 
  Country: None (occurrence: None)
  Receive Date: 20080829
  Receipt Date: 20080602
  Transmission Date: 20090109
  Serious: No
  Sender: FDA-Public Use
  Company Number: US-ABBOTT-08P-163-0454558-00

PATIENT
  Sex: Male

DRUGS (2)
  1. SIMCOR [Suspect]
     Indication: DRUG USE FOR UNKNOWN INDICATION
     Dosage: 500/20 MG
     Route: 048
     Dates: start: 20080507, end: 20080512
  2. UNKNOWN MEDICATION FOR CIRCULATION [Concomitant]
     Indication: PERIPHERAL VASCULAR DISORDER

REACTIONS (2)
  - DYSPNOEA [None]
  - OEDEMA PERIPHERAL [None]
